FAERS Safety Report 25745176 (Version 1)
Quarter: 2025Q3

REPORT INFORMATION
  Report Type: Spontaneous
  Country: US (occurrence: US)
  Receive Date: 20250901
  Receipt Date: 20250901
  Transmission Date: 20251021
  Serious: Yes (Hospitalization)
  Sender: NOVITIUM PHARMA
  Company Number: US-NOVITIUMPHARMA-2025USNVP02198

PATIENT
  Age: 83 Year
  Sex: Female

DRUGS (5)
  1. PREDNISONE [Suspect]
     Active Substance: PREDNISONE
     Indication: Primary cardiac lymphoma
  2. CYCLOPHOSPHAMIDE [Concomitant]
     Active Substance: CYCLOPHOSPHAMIDE
     Indication: Primary cardiac lymphoma
  3. DOXORUBICIN [Concomitant]
     Active Substance: DOXORUBICIN
     Indication: Primary cardiac lymphoma
  4. RITUXIMAB [Concomitant]
     Active Substance: RITUXIMAB
     Indication: Primary cardiac lymphoma
  5. VINCRISTINE [Concomitant]
     Active Substance: VINCRISTINE
     Indication: Primary cardiac lymphoma

REACTIONS (3)
  - Pyrexia [Unknown]
  - Hypophagia [Unknown]
  - Bradycardia [Unknown]
